FAERS Safety Report 5877325-6 (Version None)
Quarter: 2008Q3

REPORT INFORMATION
  Report Type: 
  Country: None (occurrence: None)
  Receive Date: 20080910
  Receipt Date: 20080902
  Transmission Date: 20090109
  Serious: Yes (Death)
  Sender: FDA-Public Use
  Company Number: JP-AMGEN-US296872

PATIENT
  Sex: Male

DRUGS (3)
  1. ENBREL [Suspect]
     Indication: RHEUMATOID ARTHRITIS
     Route: 058
     Dates: start: 20080601, end: 20080601
  2. EPOGIN [Concomitant]
     Dosage: 9000, 12000 INJECTION
     Route: 065
  3. LANSOPRAZOLE [Concomitant]
     Dosage: UNKNOWN
     Route: 065

REACTIONS (4)
  - AGRANULOCYTOSIS [None]
  - ASPIRATION [None]
  - PLATELET COUNT DECREASED [None]
  - WHITE BLOOD CELL COUNT DECREASED [None]
